FAERS Safety Report 24263306 (Version 2)
Quarter: 2024Q4

REPORT INFORMATION
  Report Type: Report from Study
  Country: US (occurrence: US)
  Receive Date: 20240829
  Receipt Date: 20241009
  Transmission Date: 20250115
  Serious: Yes (Death)
  Sender: DAIICHI
  Company Number: US-DSJP-DSU-2024-142447

PATIENT
  Sex: Male

DRUGS (3)
  1. ENHERTU [Suspect]
     Active Substance: FAM-TRASTUZUMAB DERUXTECAN-NXKI
     Indication: Lung carcinoma cell type unspecified stage 0
     Dosage: 200 MG, ONCE EVERY 3 WK
     Route: 042
     Dates: start: 20240419, end: 20240419
  2. ENHERTU [Suspect]
     Active Substance: FAM-TRASTUZUMAB DERUXTECAN-NXKI
     Indication: Lung adenocarcinoma
     Dosage: 200 MG, ONCE EVERY 3 WK
     Route: 042
     Dates: start: 20240823, end: 20240823
  3. ENHERTU [Suspect]
     Active Substance: FAM-TRASTUZUMAB DERUXTECAN-NXKI
     Dosage: UNK
     Route: 065
     Dates: start: 20240730, end: 20240730

REACTIONS (1)
  - Disease progression [Fatal]
